FAERS Safety Report 4615944-5 (Version None)
Quarter: 2005Q1

REPORT INFORMATION
  Report Type: 
  Country: None (occurrence: None)
  Receive Date: 20050318
  Receipt Date: 20050303
  Transmission Date: 20050727
  Serious: Yes (Hospitalization)
  Sender: FDA-Public Use
  Company Number: 800293

PATIENT
  Sex: Female

DRUGS (5)
  1. EXTRANEAL(ICODEXTRIN 7.5%) SOLUTION FOR PD [Suspect]
     Indication: PERITONEAL DIALYSIS
     Dosage: 2L;Q2D;INTRAPERITONEAL
     Route: 033
     Dates: start: 20041005, end: 20041227
  2. EXTRANEAL [Suspect]
  3. DIANEAL PD-1 [Concomitant]
  4. NUTRINEAL [Concomitant]
  5. UV FLASH SYSTEM [Concomitant]

REACTIONS (2)
  - BLOOD TEST ABNORMAL [None]
  - PERITONITIS [None]
